FAERS Safety Report 8072516-0 (Version None)
Quarter: 2012Q1

REPORT INFORMATION
  Report Type: 
  Country: None (occurrence: None)
  Receive Date: 20120126
  Receipt Date: 20120119
  Transmission Date: 20120608
  Serious: Yes (Hospitalization)
  Sender: FDA-Public Use
  Company Number: US-PFIZER INC-2012002246

PATIENT
  Sex: Female

DRUGS (2)
  1. BOSENTAN [Concomitant]
     Dosage: 125 MG, 2X/DAY
     Route: 048
  2. REVATIO [Suspect]
     Indication: PULMONARY HYPERTENSION
     Dosage: 20 MG, 4 TABS 3X/DAY
     Route: 048
     Dates: start: 20100210

REACTIONS (1)
  - POST PROCEDURAL COMPLICATION [None]
